FAERS Safety Report 7967152-8 (Version None)
Quarter: 2011Q4

REPORT INFORMATION
  Report Type: 
  Country: None (occurrence: None)
  Receive Date: 20111208
  Receipt Date: 20111208
  Transmission Date: 20120403
  Serious: Yes (Life-Threatening)
  Sender: FDA-Public Use
  Company Number: None

PATIENT
  Age: 65 Year
  Sex: Female

DRUGS (1)
  1. VASOTEC [Suspect]
     Indication: HYPERTENSIVE CRISIS
     Dosage: 1.25 MG IV X 1
     Route: 042

REACTIONS (2)
  - ERYTHEMA [None]
  - SWOLLEN TONGUE [None]
